FAERS Safety Report 5094472-X (Version None)
Quarter: 2006Q3

REPORT INFORMATION
  Report Type: 
  Country: None (occurrence: None)
  Receive Date: 20060731
  Receipt Date: 20060418
  Transmission Date: 20061208
  Serious: No
  Sender: FDA-Public Use
  Company Number: 2006PV012488

PATIENT
  Age: 49 Year
  Sex: Female
  Weight: 105.2345 kg

DRUGS (5)
  1. BYETTA [Suspect]
     Indication: DIABETES MELLITUS
     Dosage: 5 MCG; BID; SC
     Route: 058
     Dates: start: 20060401
  2. BYETTA [Suspect]
     Dosage: 5 MCG; BID; SC
     Route: 058
     Dates: start: 20060101, end: 20060101
  3. NOVOLIN [Concomitant]
  4. METFORMIN HCL [Concomitant]
  5. AVANDIA [Concomitant]

REACTIONS (1)
  - WEIGHT INCREASED [None]
